FAERS Safety Report 9148913 (Version 1)
Quarter: 2013Q1

REPORT INFORMATION
  Report Type: Spontaneous
  Country: US (occurrence: US)
  Receive Date: 20130308
  Receipt Date: 20130308
  Transmission Date: 20140127
  Serious: No
  Sender: FDA-Public Use
  Company Number: US-ENDO PHARMACEUTICALS INC.-OPCR20121394

PATIENT
  Age: 47 Year
  Sex: Female
  Weight: 81.72 kg

DRUGS (5)
  1. OPANA ER 20MG [Suspect]
     Indication: PAIN
     Route: 048
     Dates: start: 20120407, end: 20120409
  2. PERCOCET 10MG/325MG [Concomitant]
     Indication: PAIN
     Dosage: 30/975 MG
     Route: 048
     Dates: start: 2011
  3. OPANA ER 20MG [Concomitant]
     Indication: PAIN
     Route: 048
     Dates: start: 2011, end: 20120406
  4. VALIUM [Concomitant]
     Indication: MUSCLE SPASMS
     Route: 048
     Dates: start: 201112
  5. LUNESTA [Concomitant]
     Indication: INSOMNIA
     Route: 048
     Dates: start: 201112

REACTIONS (5)
  - Rash macular [Recovered/Resolved]
  - Rash erythematous [Recovered/Resolved]
  - Chest discomfort [Recovered/Resolved]
  - Local swelling [Recovered/Resolved]
  - Abdominal pain [Recovered/Resolved]
